FAERS Safety Report 21487881 (Version 1)
Quarter: 2022Q4

REPORT INFORMATION
  Report Type: Spontaneous
  Country: US (occurrence: US)
  Receive Date: 20221020
  Receipt Date: 20221020
  Transmission Date: 20230113
  Serious: No
  Sender: FDA-Public Use
  Company Number: US-ALLERGAN-2216860US

PATIENT
  Sex: Female

DRUGS (1)
  1. LINZESS [Suspect]
     Active Substance: LINACLOTIDE
     Indication: Irritable bowel syndrome
     Dosage: 72 ?G

REACTIONS (5)
  - Unevaluable event [Unknown]
  - Bladder discomfort [Unknown]
  - Abdominal pain [Unknown]
  - Stress [Unknown]
  - Inappropriate schedule of product administration [Unknown]
